FAERS Safety Report 4477578-5 (Version None)
Quarter: 2004Q4

REPORT INFORMATION
  Report Type: 
  Country: None (occurrence: None)
  Receive Date: 20041012
  Receipt Date: 20040927
  Transmission Date: 20050328
  Serious: Yes (Death)
  Sender: FDA-Public Use
  Company Number: 2004072357

PATIENT
  Age: 58 Year
  Sex: 0

DRUGS (2)
  1. NICOTINE (UNSPECIFIED) (NICOTINE) [Suspect]
     Dosage: ORAL
     Route: 048
  2. NICOTIANA TABACUM (NICOTIANA TABACUM) [Suspect]
     Dosage: INHALATION
     Route: 055

REACTIONS (1)
  - DEATH [None]
